FAERS Safety Report 11464079 (Version 1)
Quarter: 2015Q3

REPORT INFORMATION
  Report Type: Spontaneous
  Country: US (occurrence: US)
  Receive Date: 20150831
  Receipt Date: 20150831
  Transmission Date: 20151125
  Serious: No
  Sender: FDA-Public Use
  Company Number: US-ELI_LILLY_AND_COMPANY-US201104000677

PATIENT
  Sex: Male
  Weight: 76.19 kg

DRUGS (3)
  1. GABAPENTIN. [Concomitant]
     Active Substance: GABAPENTIN
     Dosage: 300 MG, UNK
  2. PIROXICAM. [Concomitant]
     Active Substance: PIROXICAM
     Dosage: 20 MG, QD
  3. CYMBALTA [Suspect]
     Active Substance: DULOXETINE HYDROCHLORIDE
     Indication: NEURALGIA
     Dosage: 120 MG, QD
     Route: 048
     Dates: start: 20100729

REACTIONS (2)
  - Intraocular pressure increased [Not Recovered/Not Resolved]
  - Off label use [Not Recovered/Not Resolved]
